FAERS Safety Report 9011761 (Version 1)
Quarter: 2013Q1

REPORT INFORMATION
  Report Type: Spontaneous
  Country: US (occurrence: US)
  Receive Date: 20130113
  Receipt Date: 20130113
  Transmission Date: 20140127
  Serious: No
  Sender: FDA-Public Use
  Company Number: US-009507513-1301USA005367

PATIENT
  Sex: Female
  Weight: 72.11 kg

DRUGS (1)
  1. DECADRON [Suspect]

REACTIONS (2)
  - Erythema [Unknown]
  - Flushing [Unknown]
